FAERS Safety Report 7776745-2 (Version None)
Quarter: 2011Q3

REPORT INFORMATION
  Report Type: 
  Country: None (occurrence: None)
  Receive Date: 20110926
  Receipt Date: 20110316
  Transmission Date: 20111222
  Serious: No
  Sender: FDA-Public Use
  Company Number: US-BAYER-2011-023942

PATIENT
  Sex: Female
  Weight: 63.492 kg

DRUGS (2)
  1. ULTRAVIST 150 [Suspect]
  2. SYNTHROID [Concomitant]

REACTIONS (1)
  - RASH [None]
